FAERS Safety Report 10830587 (Version 2)
Quarter: 2015Q3

REPORT INFORMATION
  Report Type: Spontaneous
  Country: US (occurrence: US)
  Receive Date: 20150219
  Receipt Date: 20150713
  Transmission Date: 20151125
  Serious: Yes (Hospitalization)
  Sender: FDA-Public Use
  Company Number: US-NOVOPROD-438769

PATIENT
  Age: 53 Year
  Sex: Male
  Weight: 86.17 kg

DRUGS (6)
  1. BYETTA [Suspect]
     Active Substance: EXENATIDE
     Dosage: 10 ?G, QD
     Route: 058
     Dates: start: 200707
  2. VICTOZA [Suspect]
     Active Substance: LIRAGLUTIDE
     Indication: TYPE 2 DIABETES MELLITUS
     Dosage: 1.8 MG, QD
     Route: 058
     Dates: start: 201004, end: 201404
  3. VICTOZA [Suspect]
     Active Substance: LIRAGLUTIDE
     Dosage: UNK
  4. BYETTA [Suspect]
     Active Substance: EXENATIDE
     Dosage: 10 ?G, QD
     Route: 058
     Dates: start: 200808, end: 201004
  5. BYETTA [Suspect]
     Active Substance: EXENATIDE
     Dosage: 5 ?G, BID
     Route: 058
     Dates: start: 20080622
  6. BYETTA [Suspect]
     Active Substance: EXENATIDE
     Indication: TYPE 2 DIABETES MELLITUS
     Dosage: 5 ?G, BID
     Route: 058
     Dates: start: 200706

REACTIONS (1)
  - Pancreatic neuroendocrine tumour [Recovered/Resolved]

NARRATIVE: CASE EVENT DATE: 20140415
